FAERS Safety Report 7003964-5 (Version None)
Quarter: 2010Q3

REPORT INFORMATION
  Report Type: 
  Country: None (occurrence: None)
  Receive Date: 20100920
  Receipt Date: 20091218
  Transmission Date: 20110219
  Serious: No
  Sender: FDA-Public Use
  Company Number: US-WYE-H12734309

PATIENT
  Age: 72 Year
  Sex: Male
  Weight: 90.8 kg

DRUGS (1)
  1. PANTOPRAZOLE [Suspect]
     Route: 048

REACTIONS (1)
  - ABDOMINAL DISTENSION [None]
